FAERS Safety Report 20050587 (Version 1)
Quarter: 2021Q4

REPORT INFORMATION
  Report Type: Spontaneous
  Country: US (occurrence: US)
  Receive Date: 20211109
  Receipt Date: 20211109
  Transmission Date: 20220303
  Serious: No
  Sender: FDA-Public Use
  Company Number: US-drreddys-SPO/USA/21/0143519

PATIENT
  Sex: Female

DRUGS (2)
  1. IBANDRONATE SODIUM [Suspect]
     Active Substance: IBANDRONATE SODIUM
     Indication: Bone disorder
  2. IBANDRONATE SODIUM [Suspect]
     Active Substance: IBANDRONATE SODIUM
     Dosage: ACCIDENTALLY TOOK 2 PILLS IN ONE DAY.

REACTIONS (1)
  - Accidental overdose [Unknown]
